FAERS Safety Report 8620169-2 (Version None)
Quarter: 2012Q3

REPORT INFORMATION
  Report Type: 
  Country: None (occurrence: None)
  Receive Date: 20120816
  Receipt Date: 20120816
  Transmission Date: 20120928
  Serious: Yes (Life-Threatening)
  Sender: FDA-Public Use
  Company Number: None

PATIENT
  Age: 41 Year
  Sex: Female
  Weight: 70.3075 kg

DRUGS (2)
  1. LYRICA [Suspect]
     Indication: NEURALGIA
     Dosage: 100MG 2/DAY PO
     Route: 048
     Dates: start: 20060710, end: 20120717
  2. LYRICA [Suspect]
     Indication: CEREBROVASCULAR ACCIDENT
     Dosage: 100MG 2/DAY PO
     Route: 048
     Dates: start: 20060710, end: 20120717

REACTIONS (9)
  - NERVOUS SYSTEM DISORDER [None]
  - MENSTRUAL DISORDER [None]
  - MARITAL PROBLEM [None]
  - CRYING [None]
  - WEIGHT INCREASED [None]
  - LIBIDO DECREASED [None]
  - SUICIDAL IDEATION [None]
  - ACTIVITIES OF DAILY LIVING IMPAIRED [None]
  - OEDEMA PERIPHERAL [None]
